FAERS Safety Report 12213321 (Version 1)
Quarter: 2016Q1

REPORT INFORMATION
  Report Type: Spontaneous
  Country: US (occurrence: None)
  Receive Date: 20160325
  Receipt Date: 20160325
  Transmission Date: 20160526
  Serious: Yes (Disabling)
  Sender: FDA-Public Use
  Company Number: None

PATIENT
  Age: 54 Year
  Sex: Female
  Weight: 107.5 kg

DRUGS (6)
  1. LISINOPRIL. [Concomitant]
     Active Substance: LISINOPRIL
  2. PANTOPRAZOLE [Concomitant]
     Active Substance: PANTOPRAZOLE SODIUM
  3. SYNTHROID [Concomitant]
     Active Substance: LEVOTHYROXINE SODIUM
  4. ABILIFY [Suspect]
     Active Substance: ARIPIPRAZOLE
     Indication: ANTIDEPRESSANT THERAPY
     Dosage: IN THE MORNING
     Route: 048
  5. PAXIL [Concomitant]
     Active Substance: PAROXETINE HYDROCHLORIDE
  6. VITAMIN D [Concomitant]
     Active Substance: CHOLECALCIFEROL

REACTIONS (5)
  - Weight increased [None]
  - Dry mouth [None]
  - Dysarthria [None]
  - Tardive dyskinesia [None]
  - Drug withdrawal syndrome [None]

NARRATIVE: CASE EVENT DATE: 20151021
